FAERS Safety Report 4445877-9 (Version None)
Quarter: 2004Q3

REPORT INFORMATION
  Report Type: 
  Country: None (occurrence: None)
  Receive Date: 20040907
  Receipt Date: 20040825
  Transmission Date: 20050211
  Serious: Yes (Other)
  Sender: FDA-Public Use
  Company Number: GBWYE005027AUG04

PATIENT
  Age: 32 Year
  Sex: Male

DRUGS (5)
  1. EFFEXOR [Suspect]
     Indication: ANXIETY
     Dosage: 37.5-75 MG TWICE DAILY
     Route: 048
     Dates: start: 20040701, end: 20040701
  2. EFFEXOR [Suspect]
     Indication: ANXIETY
     Dosage: 37.5-75 MG TWICE DAILY
     Route: 048
     Dates: start: 20040701, end: 20040715
  3. ALCOHOL (ETHANOL) [Suspect]
     Route: 048
  4. CLOZARIL [Suspect]
     Indication: SCHIZOPHRENIA
     Dates: start: 20031010
  5. FLECAINIDE ACETATE [Concomitant]

REACTIONS (4)
  - CONVULSION [None]
  - FALL [None]
  - SPINAL FRACTURE [None]
  - SYNCOPE [None]
